FAERS Safety Report 8445367-2 (Version None)
Quarter: 2012Q2

REPORT INFORMATION
  Report Type: 
  Country: None (occurrence: None)
  Receive Date: 20120323
  Receipt Date: 20111028
  Transmission Date: 20120825
  Serious: Yes (Hospitalization)
  Sender: FDA-Public Use
  Company Number: 163-21880-11103472

PATIENT
  Age: 59 Year
  Sex: Male
  Weight: 113.3993 kg

DRUGS (10)
  1. LENALIDOMIDE [Suspect]
     Indication: CHRONIC LYMPHOCYTIC LEUKAEMIA
     Dosage: 10 MG, DAILY X 21 DAYS, PO; 10 MG, DAILY X 21 DAYS, PO
     Route: 048
     Dates: start: 20111026
  2. LENALIDOMIDE [Suspect]
     Indication: CHRONIC LYMPHOCYTIC LEUKAEMIA
     Dosage: 10 MG, DAILY X 21 DAYS, PO; 10 MG, DAILY X 21 DAYS, PO
     Route: 048
     Dates: start: 20110910, end: 20111011
  3. HYZAAR [Concomitant]
  4. TRICOR [Concomitant]
  5. FISH OIL [Concomitant]
  6. ASPIRIN [Concomitant]
  7. PROTONIX [Concomitant]
  8. MULITVITAMIN (MULTIVITAMINS) [Concomitant]
  9. RITUXAN [Concomitant]
  10. VITAMIN E [Concomitant]

REACTIONS (2)
  - LOCALISED INFECTION [None]
  - WHITE BLOOD CELL COUNT DECREASED [None]
